FAERS Safety Report 23648412 (Version 1)
Quarter: 2024Q1

REPORT INFORMATION
  Report Type: Spontaneous
  Country: US (occurrence: US)
  Receive Date: 20240319
  Receipt Date: 20240319
  Transmission Date: 20240410
  Serious: No
  Sender: FDA-Public Use
  Company Number: US-MYLANLABS-2024M1024271

PATIENT

DRUGS (1)
  1. EFFEXOR XR EXTENDED-RELEASE [Suspect]
     Active Substance: VENLAFAXINE HYDROCHLORIDE
     Indication: Menopausal disorder
     Dosage: 75 MILLIGRAM, QD (WITH FOOD, SWALLOW WHOLE)
     Route: 048

REACTIONS (1)
  - Off label use [Unknown]
